FAERS Safety Report 24386231 (Version 2)
Quarter: 2024Q4

REPORT INFORMATION
  Report Type: Spontaneous
  Country: DE (occurrence: DE)
  Receive Date: 20241001
  Receipt Date: 20241026
  Transmission Date: 20250115
  Serious: Yes (Other)
  Sender: ABBVIE
  Company Number: DE-TAKEDA-2024TUS094629

PATIENT
  Sex: Male

DRUGS (1)
  1. TRENANTONE [Suspect]
     Active Substance: LEUPROLIDE ACETATE
     Indication: Product used for unknown indication
     Dosage: UNK UNK, Q3MONTHS
     Route: 065
     Dates: start: 2009

REACTIONS (9)
  - Dementia [Unknown]
  - Blood pressure increased [Unknown]
  - Hot flush [Unknown]
  - Diabetes mellitus [Unknown]
  - Dysstasia [Unknown]
  - Gait disturbance [Unknown]
  - Muscular weakness [Unknown]
  - Weight increased [Unknown]
  - Bedridden [Unknown]

NARRATIVE: CASE EVENT DATE: 20180101
